FAERS Safety Report 13686785 (Version 2)
Quarter: 2017Q3

REPORT INFORMATION
  Report Type: Spontaneous
  Country: US (occurrence: US)
  Receive Date: 20170623
  Receipt Date: 20170705
  Transmission Date: 20171127
  Serious: No
  Sender: FDA-Public Use
  Company Number: US-VERTEX PHARMACEUTICALS-2017-003326

PATIENT
  Age: 11 Year
  Sex: Male

DRUGS (4)
  1. PULMOZYME [Concomitant]
     Active Substance: DORNASE ALFA
     Dosage: 2.5 MG, DAILY
  2. ORKAMBI [Suspect]
     Active Substance: IVACAFTOR\LUMACAFTOR
     Indication: CYSTIC FIBROSIS
     Dosage: 2 TABS (100/ 125 MG EACH), BID, WITH FAT CONTAINING  MEAL
     Route: 048
     Dates: start: 201703
  3. ALBUTEROL HFA [Concomitant]
     Active Substance: ALBUTEROL SULFATE
     Dosage: 2 INHALATIONS, BID
     Route: 055
  4. HYPERTONIC SALINE SOLUTION [Concomitant]
     Active Substance: SODIUM CHLORIDE
     Dosage: UNK UNK, BID

REACTIONS (1)
  - Respiratory tract infection bacterial [Unknown]

NARRATIVE: CASE EVENT DATE: 20170601
